FAERS Safety Report 18127055 (Version 1)
Quarter: 2020Q3

REPORT INFORMATION
  Report Type: Spontaneous
  Country: US (occurrence: US)
  Receive Date: 20200810
  Receipt Date: 20200810
  Transmission Date: 20201103
  Serious: Yes (Death, Other)
  Sender: FDA-Public Use
  Company Number: US-DRREDDYS-USA/USA/20/0125655

PATIENT
  Sex: Male

DRUGS (4)
  1. RANITIDINE. [Suspect]
     Active Substance: RANITIDINE
     Indication: PRODUCT USED FOR UNKNOWN INDICATION
     Route: 048
     Dates: start: 20150812, end: 20170412
  2. RANITIDINE. [Suspect]
     Active Substance: RANITIDINE
     Route: 048
     Dates: start: 20150812, end: 20170412
  3. RANITIDINE. [Suspect]
     Active Substance: RANITIDINE
     Route: 048
     Dates: start: 20150812, end: 20170412
  4. RANITIDINE. [Suspect]
     Active Substance: RANITIDINE
     Route: 048
     Dates: start: 20150812, end: 20170412

REACTIONS (2)
  - Death [Fatal]
  - Colorectal cancer [Unknown]

NARRATIVE: CASE EVENT DATE: 20170312
